FAERS Safety Report 6656720-1 (Version None)
Quarter: 2010Q1

REPORT INFORMATION
  Report Type: 
  Country: None (occurrence: None)
  Receive Date: 20100329
  Receipt Date: 20090901
  Transmission Date: 20100710
  Serious: No
  Sender: FDA-Public Use
  Company Number: US-TYCO HEALTHCARE/MALLINCKRODT-T200901624

PATIENT
  Sex: Female
  Weight: 54.422 kg

DRUGS (12)
  1. IMIPRAMINE PAMOATE [Suspect]
     Indication: INSOMNIA
     Dosage: 150 MG, QPM
     Dates: start: 20080820, end: 20081105
  2. IMIPRAMINE PAMOATE [Suspect]
     Dosage: REDUCED INTAKE; DROPPED SOME POWDER OUT OF CAPSULES
     Route: 048
     Dates: start: 20081102, end: 20081101
  3. IMIPRAMINE PAMOATE [Suspect]
     Dosage: (2) 50 MG TABLETS IN THE EVENING
     Route: 048
     Dates: start: 20081106
  4. FOSAMAX [Concomitant]
     Dosage: 70 MG, Q WEEK
     Route: 048
  5. LEVOTHYROXINE SODIUM [Concomitant]
     Indication: THYROID DISORDER
     Dosage: 100 MG, QD
     Route: 048
  6. CHLOROTHIAZIDE [Concomitant]
     Indication: DIURETIC THERAPY
     Dosage: UNK
     Route: 048
  7. POTASSIUM CHLORIDE [Concomitant]
     Indication: SUPPLEMENTATION THERAPY
     Dosage: UNK
     Route: 048
  8. MAGNESIUM [Concomitant]
     Indication: SUPPLEMENTATION THERAPY
     Dosage: 250 MG, UNK
     Route: 048
  9. ASPIRIN [Concomitant]
     Dosage: 81 MG, UNK
     Route: 048
  10. CALCIUM W/VITAMIN D NOS [Concomitant]
     Dosage: 600 MG, UNK
     Route: 048
  11. NAMENDA [Concomitant]
     Dosage: 10 MG, Q MORNING + AFTERNOON
     Route: 048
  12. NORTRIPTYLINE HCL [Concomitant]
     Indication: INSOMNIA
     Dosage: UNK
     Dates: end: 20080801

REACTIONS (11)
  - ASTHENIA [None]
  - BALANCE DISORDER [None]
  - CONTUSION [None]
  - DIARRHOEA [None]
  - DIZZINESS [None]
  - FOOD CRAVING [None]
  - HALLUCINATION [None]
  - HYPERHIDROSIS [None]
  - OROPHARYNGEAL PAIN [None]
  - SOMNOLENCE [None]
  - WRONG TECHNIQUE IN DRUG USAGE PROCESS [None]
